FAERS Safety Report 7291421-0 (Version None)
Quarter: 2011Q1

REPORT INFORMATION
  Report Type: 
  Country: None (occurrence: None)
  Receive Date: 20110214
  Receipt Date: 20110208
  Transmission Date: 20110831
  Serious: Yes (Hospitalization)
  Sender: FDA-Public Use
  Company Number: B0699381A

PATIENT
  Age: 72 Year
  Sex: Female

DRUGS (6)
  1. ACENOCOUMAROL [Suspect]
     Indication: CONGENITAL HEART VALVE DISORDER
     Route: 048
     Dates: end: 20100510
  2. AUGMENTIN XR [Suspect]
     Indication: RESPIRATORY TRACT INFECTION BACTERIAL
     Dosage: 1000MG THREE TIMES PER DAY
     Route: 048
     Dates: start: 20100507, end: 20100514
  3. ZYLORIC [Concomitant]
     Route: 048
  4. SEGURIL [Concomitant]
     Indication: CARDIAC FAILURE
     Dosage: 80MG PER DAY
     Route: 048
  5. BOI K [Concomitant]
     Route: 048
  6. INNOHEP [Suspect]
     Indication: CARDIOVASCULAR DISORDER
     Dosage: 2000IU PER DAY
     Route: 058
     Dates: start: 20100507, end: 20100509

REACTIONS (2)
  - DRUG INTERACTION [None]
  - ABDOMINAL WALL HAEMATOMA [None]
